FAERS Safety Report 6793422-5 (Version None)
Quarter: 2010Q2

REPORT INFORMATION
  Report Type: 
  Country: None (occurrence: None)
  Receive Date: 20100624
  Receipt Date: 20100329
  Transmission Date: 20101027
  Serious: Yes (Other)
  Sender: FDA-Public Use
  Company Number: US-MYLANLABS-2010S1003132

PATIENT
  Age: 36 Year
  Sex: Female
  Weight: 70.76 kg

DRUGS (5)
  1. CLOZAPINE [Suspect]
     Indication: SCHIZOPHRENIA
     Dates: start: 20091201, end: 20100224
  2. CLOZAPINE [Suspect]
     Indication: PSYCHOTIC DISORDER
     Dates: start: 20091201, end: 20100224
  3. CLOZAPINE [Suspect]
     Dates: start: 20091201, end: 20100224
  4. CLOZAPINE [Suspect]
     Dates: start: 20091201, end: 20100224
  5. TOPAMAX [Concomitant]

REACTIONS (2)
  - GRANULOCYTOPENIA [None]
  - LEUKOPENIA [None]
